FAERS Safety Report 7043957-5 (Version None)
Quarter: 2010Q4

REPORT INFORMATION
  Report Type: 
  Country: None (occurrence: None)
  Receive Date: 20101008
  Receipt Date: 20101008
  Transmission Date: 20110411
  Serious: Yes (Life-Threatening, Hospitalization)
  Sender: FDA-Public Use
  Company Number: None

PATIENT
  Age: 21 Year
  Sex: Female
  Weight: 65.7716 kg

DRUGS (2)
  1. EFFEXOR [Suspect]
     Indication: ANXIETY
     Dosage: 75MG INCREASED TO 150MG 1-2 PER DAY PO
     Route: 048
     Dates: start: 20100201, end: 20100223
  2. EFFEXOR [Suspect]
     Indication: DEPRESSION
     Dosage: 75MG INCREASED TO 150MG 1-2 PER DAY PO
     Route: 048
     Dates: start: 20100201, end: 20100223

REACTIONS (3)
  - HALLUCINATIONS, MIXED [None]
  - SELF-INJURIOUS IDEATION [None]
  - SUICIDAL IDEATION [None]
